FAERS Safety Report 6296015-1 (Version None)
Quarter: 2009Q3

REPORT INFORMATION
  Report Type: 
  Country: None (occurrence: None)
  Receive Date: 20090804
  Receipt Date: 20090729
  Transmission Date: 20100115
  Serious: Yes (Hospitalization)
  Sender: FDA-Public Use
  Company Number: KR-BRISTOL-MYERS SQUIBB COMPANY-14718712

PATIENT
  Age: 59 Year
  Sex: Male
  Weight: 44 kg

DRUGS (3)
  1. CETUXIMAB [Suspect]
     Indication: GASTROOESOPHAGEAL CANCER
     Dosage: STR: 5MG/ML RECENT INFUSION ON 16JUL09 WITH HELD ON 23JUL2009
     Route: 042
     Dates: start: 20090617
  2. CISPLATIN [Suspect]
     Indication: GASTROOESOPHAGEAL CANCER
     Dosage: MOST RECENT INFUSION ON 16JUL09 DAY 1 OF CYC
     Route: 042
     Dates: start: 20090618
  3. XELODA [Suspect]
     Indication: GASTROOESOPHAGEAL CANCER
     Dosage: TABLET RECENT INFUSION ON 21JUL09, WITH HELD ON 22JUL2009
     Route: 048
     Dates: start: 20090617

REACTIONS (1)
  - DECREASED APPETITE [None]
